FAERS Safety Report 8998525 (Version 1)
Quarter: 2013Q1

REPORT INFORMATION
  Report Type: Spontaneous
  Country: JP (occurrence: JP)
  Receive Date: 20130103
  Receipt Date: 20130103
  Transmission Date: 20140127
  Serious: Yes (Other)
  Sender: FDA-Public Use
  Company Number: JP-TEVA-377828ISR

PATIENT
  Age: 45 Year
  Sex: Male

DRUGS (2)
  1. PREDNISOLONE [Suspect]
     Indication: BRAIN OEDEMA
     Dosage: 15 MILLIGRAM DAILY; GRADUALLY TAPERED OFF
     Route: 065
  2. TEMOZOLOMIDE [Suspect]
     Indication: GLIOBLASTOMA
     Dosage: 75 MG/M2 DAILY;
     Route: 065

REACTIONS (4)
  - Pyrexia [Recovered/Resolved]
  - Lymphopenia [Recovered/Resolved]
  - Cytomegalovirus hepatitis [Recovered/Resolved]
  - Cytomegalovirus infection [Recovered/Resolved]
